FAERS Safety Report 16178706 (Version 1)
Quarter: 2019Q2

REPORT INFORMATION
  Report Type: Spontaneous
  Country: DE (occurrence: DE)
  Receive Date: 20190410
  Receipt Date: 20190410
  Transmission Date: 20190711
  Serious: No
  Sender: FDA-Public Use
  Company Number: DE-ALKEM LABORATORIES LIMITED-DE-ALKEM-2018-07808

PATIENT
  Age: 41 Year
  Sex: Female

DRUGS (1)
  1. QUETIAPINE FUMARATE. [Suspect]
     Active Substance: QUETIAPINE FUMARATE
     Indication: DEPRESSION
     Dosage: 50 MG, HALF A TABLET IN THE EVENING (FILM-COATED TABLET)
     Route: 065

REACTIONS (4)
  - Confusional state [Recovering/Resolving]
  - Product quality issue [Unknown]
  - Drug ineffective [Unknown]
  - Sedation [Unknown]
